FAERS Safety Report 8994613 (Version 3)
Quarter: 2013Q1

REPORT INFORMATION
  Report Type: Spontaneous
  Country: US (occurrence: None)
  Receive Date: 20121221
  Receipt Date: 20130123
  Transmission Date: 20140127
  Serious: Yes (Death, Hospitalization)
  Sender: FDA-Public Use
  Company Number: AUR-APL-2012-05452

PATIENT
  Age: 78 Year
  Sex: Female

DRUGS (11)
  1. SUMATRIPTAN [Suspect]
     Indication: MIGRAINE
     Dosage: PRIOR TO GOING TO BED
     Route: 048
  2. CYCLOSPORINE (CICLOSPORIN) [Suspect]
     Indication: PRODUCT USED FOR UNKNOWN INDICATION
     Dosage: (25 MG, 4 IN 1 D)
  3. PREDNISONE (PREDNISONE) [Concomitant]
  4. DILTIAZEM [Concomitant]
  5. ATENOLOL (ATENOLOL) [Concomitant]
  6. ALLOPURINOL [Concomitant]
  7. METHIMAZOLE (THIAMAZOLE) [Concomitant]
  8. RISEDRONATE (RISEDRONATE SODIUM) [Concomitant]
  9. TEMAZEPAM (TEMAZEPAM) [Concomitant]
  10. ALPRAZOLAM (ALPRAZOLAM) [Concomitant]
  11. FUROSEMIDE (FUROSEMIDE) [Concomitant]

REACTIONS (3)
  - Graft complication [None]
  - Renal failure acute [None]
  - Renal infarct [None]
